FAERS Safety Report 11152918 (Version 3)
Quarter: 2015Q3

REPORT INFORMATION
  Report Type: Spontaneous
  Country: US (occurrence: US)
  Receive Date: 20150601
  Receipt Date: 20150710
  Transmission Date: 20151125
  Serious: Yes (Death, Hospitalization)
  Sender: FDA-Public Use
  Company Number: US-BAYER-2015-278866

PATIENT
  Age: 27 Year
  Sex: Male
  Weight: 77.1 kg

DRUGS (1)
  1. KOGENATE FS [Suspect]
     Active Substance: ANTIHEMOPHILIC FACTOR, HUMAN RECOMBINANT
     Indication: FACTOR VIII DEFICIENCY
     Dosage: ~2000 U, TWO TO THEE TIMES WEEKLY
     Route: 042
     Dates: start: 19881124, end: 20150209

REACTIONS (1)
  - Self injurious behaviour [Fatal]

NARRATIVE: CASE EVENT DATE: 20150517
